FAERS Safety Report 23405867 (Version 1)
Quarter: 2024Q1

REPORT INFORMATION
  Report Type: Spontaneous
  Country: GR (occurrence: GR)
  Receive Date: 20240116
  Receipt Date: 20240116
  Transmission Date: 20240410
  Serious: Yes (Death)
  Sender: FDA-Public Use
  Company Number: GR-GILEAD-2024-0657377

PATIENT
  Age: 79 Year
  Sex: Male

DRUGS (2)
  1. AMPHOTERICIN B [Interacting]
     Active Substance: AMPHOTERICIN B
     Indication: Mucormycosis
     Dosage: UNK UNK, UNKNOWN FREQ.
     Route: 042
  2. POSACONAZOLE [Interacting]
     Active Substance: POSACONAZOLE
     Indication: Mucormycosis
     Dosage: UNK UNK, UNKNOWN FREQ.
     Route: 065

REACTIONS (2)
  - Drug ineffective for unapproved indication [Fatal]
  - Drug interaction [Fatal]
